FAERS Safety Report 5711137-9 (Version None)
Quarter: 2008Q2

REPORT INFORMATION
  Report Type: 
  Country: None (occurrence: None)
  Receive Date: 20080421
  Receipt Date: 20080409
  Transmission Date: 20081010
  Serious: Yes (Hospitalization)
  Sender: FDA-Public Use
  Company Number: US-BAYER-200714252BWH

PATIENT
  Age: 74 Year
  Sex: Male
  Weight: 91 kg

DRUGS (1)
  1. AVELOX [Suspect]
     Indication: STAPHYLOCOCCAL INFECTION
     Dosage: TOTAL DAILY DOSE: 400 MG  UNIT DOSE: 400 MG
     Route: 048
     Dates: start: 20070901

REACTIONS (10)
  - ANAPHYLACTIC REACTION [None]
  - BLINDNESS [None]
  - CHEST PAIN [None]
  - DYSPNOEA [None]
  - GENERALISED ERYTHEMA [None]
  - HEART RATE IRREGULAR [None]
  - LOCAL SWELLING [None]
  - PRURITUS GENERALISED [None]
  - SWELLING [None]
  - SWELLING FACE [None]
